FAERS Safety Report 25043467 (Version 1)
Quarter: 2025Q1

REPORT INFORMATION
  Report Type: Spontaneous
  Country: US (occurrence: US)
  Receive Date: 20250306
  Receipt Date: 20250306
  Transmission Date: 20250409
  Serious: No
  Sender: TAKEDA
  Company Number: US-TAKEDA-2025TUS022978

PATIENT
  Sex: Female
  Weight: 67 kg

DRUGS (1)
  1. VYVANSE [Suspect]
     Active Substance: LISDEXAMFETAMINE DIMESYLATE
     Indication: Attention deficit hyperactivity disorder
     Dosage: UNK UNK, QD

REACTIONS (4)
  - Mental disorder [Unknown]
  - Heart rate increased [Unknown]
  - Tremor [Unknown]
  - Blood pressure increased [Unknown]
